FAERS Safety Report 8500620-9 (Version None)
Quarter: 2012Q3

REPORT INFORMATION
  Report Type: 
  Country: None (occurrence: None)
  Receive Date: 20120710
  Receipt Date: 20120703
  Transmission Date: 20120928
  Serious: Yes (Other)
  Sender: FDA-Public Use
  Company Number: BR-PFIZER INC-2012160311

PATIENT
  Age: 46 Year
  Sex: Female
  Weight: 80 kg

DRUGS (5)
  1. LIPITOR [Suspect]
     Indication: BLOOD CHOLESTEROL
     Dosage: 40 MG, 1X/DAY
     Route: 048
     Dates: start: 20081127, end: 20090101
  2. TENORETIC [Concomitant]
     Indication: HYPERTENSION
     Dosage: 100 MG, 1X/DAY
     Dates: start: 19970101, end: 20120101
  3. VENLAFAXINE [Concomitant]
     Indication: FIBROMYALGIA
     Dosage: 150 MG, 1X/DAY
     Dates: start: 20070101, end: 20120101
  4. CELEBREX [Suspect]
     Indication: SPINAL PAIN
     Dosage: UNK
     Dates: start: 20100101
  5. METFORMIN [Concomitant]
     Indication: DIABETES MELLITUS
     Dosage: UNK, ONCE A DAY
     Dates: start: 20110101, end: 20120101

REACTIONS (3)
  - DIABETES MELLITUS [None]
  - SPINAL PAIN [None]
  - TENDONITIS [None]
